FAERS Safety Report 16576926 (Version 1)
Quarter: 2019Q3

REPORT INFORMATION
  Report Type: Spontaneous
  Country: US (occurrence: US)
  Receive Date: 20190715
  Receipt Date: 20190715
  Transmission Date: 20191004
  Serious: Yes (Hospitalization)
  Sender: FDA-Public Use
  Company Number: None

PATIENT
  Age: 57 Year
  Sex: Male

DRUGS (9)
  1. NORCO 5-325MG TABS [Concomitant]
  2. COSENTYX [Suspect]
     Active Substance: SECUKINUMAB
     Indication: RHEUMATOID ARTHRITIS
     Dosage: ?          OTHER FREQUENCY:ONCE EVERY 4 WEEKS;?
     Route: 058
     Dates: start: 20190219, end: 20190710
  3. GABAPENTIN 300MG CAPS [Concomitant]
  4. SYMBICORT AER 80-4.5 [Concomitant]
  5. PANTOPRAZOLE 40MG TAB [Concomitant]
  6. FAMOTIDINE 40MG TAB [Concomitant]
  7. TIZANADINE 2MG TAB [Concomitant]
  8. VIT D3 1000 UNIT CAPS [Concomitant]
  9. DICLOFENAC 75MG TAB [Concomitant]

REACTIONS (2)
  - Knee operation [None]
  - Therapy cessation [None]

NARRATIVE: CASE EVENT DATE: 20190710
